FAERS Safety Report 8262981-8 (Version None)
Quarter: 2012Q1

REPORT INFORMATION
  Report Type: 
  Country: None (occurrence: None)
  Receive Date: 20120327
  Receipt Date: 20090408
  Transmission Date: 20120608
  Serious: Yes (Other)
  Sender: FDA-Public Use
  Company Number: PHEH2009US02454

PATIENT
  Sex: Male

DRUGS (2)
  1. IRON (IRON) [Concomitant]
  2. GLEEVEC [Suspect]
     Indication: CHRONIC MYELOID LEUKAEMIA
     Dosage: 400 MG, QD, ORAL
     Route: 048
     Dates: start: 20080701

REACTIONS (3)
  - HAEMATEMESIS [None]
  - NERVOUSNESS [None]
  - HAEMORRHAGE [None]
